FAERS Safety Report 7335349-6 (Version None)
Quarter: 2011Q1

REPORT INFORMATION
  Report Type: 
  Country: None (occurrence: None)
  Receive Date: 20110307
  Receipt Date: 20110228
  Transmission Date: 20110831
  Serious: No
  Sender: FDA-Public Use
  Company Number: US-PFIZER INC-2010180100

PATIENT
  Sex: Male
  Weight: 95 kg

DRUGS (4)
  1. CELEXA [Concomitant]
     Dosage: 20 MG, 1X/DAY
  2. LORTAB [Concomitant]
     Dosage: UNK
  3. PROTONIX [Suspect]
     Indication: GASTROOESOPHAGEAL REFLUX DISEASE
     Dosage: 40 MG, 1X/DAY
     Route: 048
     Dates: start: 20100501
  4. VALIUM [Concomitant]
     Dosage: 10 MG, 1X/DAY

REACTIONS (1)
  - DRUG SCREEN POSITIVE [None]
